FAERS Safety Report 22307422 (Version 1)
Quarter: 2023Q2

REPORT INFORMATION
  Report Type: Spontaneous
  Country: IT (occurrence: IT)
  Receive Date: 20230511
  Receipt Date: 20230511
  Transmission Date: 20230721
  Serious: Yes (Other)
  Sender: FDA-Public Use
  Company Number: None

PATIENT
  Age: 42 Year
  Sex: Male
  Weight: 51 kg

DRUGS (1)
  1. LAMOTRIGINE [Suspect]
     Active Substance: LAMOTRIGINE
     Indication: Epilepsy
     Dosage: UNK, 50 MG 1/ 2 CP PER 2 SETTIMANE50 MG 1/2 PLUS 1/2 PER 2 SETTIMANE 50 MG 1 PLUS 1 PER DUE SETTIMAN
     Route: 048
     Dates: start: 20210526, end: 20210818

REACTIONS (1)
  - Skin reaction [Recovered/Resolved]

NARRATIVE: CASE EVENT DATE: 20210801
